FAERS Safety Report 14631469 (Version 2)
Quarter: 2018Q2

REPORT INFORMATION
  Report Type: Spontaneous
  Country: FR (occurrence: FR)
  Receive Date: 20180313
  Receipt Date: 20180422
  Transmission Date: 20180711
  Serious: Yes (Disabling)
  Sender: FDA-Public Use
  Company Number: FR-APOTEX-2018AP008332

PATIENT

DRUGS (3)
  1. MILNACIPRAN [Concomitant]
     Active Substance: MILNACIPRAN
     Indication: DEPRESSION
     Dosage: UNK
     Route: 065
  2. PAROXETINE TABLET [Suspect]
     Active Substance: PAROXETINE
     Dosage: 20 MG, QD
     Route: 065
  3. CLOMIPRAMINE [Suspect]
     Active Substance: CLOMIPRAMINE
     Indication: DEPRESSION
     Dosage: ADDITONAL DOSING INFOMATION COMMENT FOR DOSE1:25MG
     Route: 065

REACTIONS (3)
  - Speech disorder [Unknown]
  - Yawning [Recovered/Resolved]
  - Muscle contracture [Unknown]
